FAERS Safety Report 5079361-9 (Version None)
Quarter: 2006Q3

REPORT INFORMATION
  Report Type: 
  Country: None (occurrence: None)
  Receive Date: 20060808
  Receipt Date: 20060726
  Transmission Date: 20061208
  Serious: Yes (Hospitalization)
  Sender: FDA-Public Use
  Company Number: 219110

PATIENT
  Age: 52 Year
  Sex: Male
  Weight: 67.8 kg

DRUGS (12)
  1. AVASTIN [Suspect]
     Indication: COLON CANCER
     Dosage: 362.5 MG, Q2W, INTRAVENOUS
     Route: 042
     Dates: start: 20050601, end: 20051024
  2. OXALIPLATIN [Suspect]
     Indication: COLON CANCER
     Dosage: 140 MG, Q2W, INTRAVENOUS
     Route: 042
     Dates: start: 20050601, end: 20051024
  3. FLUOROURACIL [Suspect]
     Indication: COLON CANCER
     Dosage: 550 MG, Q2W, INTRAVENOUS
     Route: 042
     Dates: start: 20050601, end: 20051024
  4. LEUCOVORIN CALCIUM [Suspect]
     Indication: COLON CANCER
     Dosage: 350 MG, Q2W, INTRAVENOUS
     Route: 042
     Dates: start: 20050601, end: 20051024
  5. GRANISETRON        (GRANISETRON HYDROCHLORIDE) [Concomitant]
  6. THIAMINE  (THIAMINE HYDROCHLORIDE) [Concomitant]
  7. VITAMIN B NOS (VITAMIN B NOS) [Concomitant]
  8. PENTASA [Concomitant]
  9. TRAMADOL HCL [Concomitant]
  10. ACETAMINOPHEN [Concomitant]
  11. FERROUS SULFATE TAB [Concomitant]
  12. CEFTRIAXONE [Concomitant]

REACTIONS (7)
  - DEHYDRATION [None]
  - DIARRHOEA [None]
  - HYPERTENSION [None]
  - NEUTROPENIA [None]
  - PYREXIA [None]
  - RENAL IMPAIRMENT [None]
  - TACHYCARDIA [None]
